FAERS Safety Report 5499961-1 (Version None)
Quarter: 2007Q4

REPORT INFORMATION
  Report Type: 
  Country: None (occurrence: None)
  Receive Date: 20071026
  Receipt Date: 20071018
  Transmission Date: 20080405
  Serious: Yes (Hospitalization)
  Sender: FDA-Public Use
  Company Number: US-ABBOTT-07P-163-0419924-00

PATIENT
  Sex: Female
  Weight: 68.1 kg

DRUGS (8)
  1. HUMIRA [Suspect]
     Indication: CROHN'S DISEASE
     Route: 058
     Dates: start: 20070912
  2. HUMIRA [Suspect]
     Route: 058
     Dates: start: 20070813, end: 20070813
  3. HUMIRA [Suspect]
     Route: 058
     Dates: start: 20070829, end: 20070829
  4. HUMIRA [Suspect]
     Route: 058
  5. PREDNISONE [Concomitant]
     Indication: CROHN'S DISEASE
     Route: 048
  6. SULFASALAZINE [Concomitant]
     Indication: CROHN'S DISEASE
     Route: 048
  7. INSULIN LISPRO [Concomitant]
     Indication: DIABETES MELLITUS
     Dosage: SLIDING SCALE
     Route: 058
  8. CALCIUM [Concomitant]
     Indication: MINERAL SUPPLEMENTATION
     Route: 048

REACTIONS (5)
  - CROHN'S DISEASE [None]
  - DIARRHOEA [None]
  - DRUG INEFFECTIVE [None]
  - HAEMORRHAGE [None]
  - INJECTION SITE PAIN [None]
